FAERS Safety Report 19070007 (Version 1)
Quarter: 2021Q1

REPORT INFORMATION
  Report Type: Spontaneous
  Country: US (occurrence: US)
  Receive Date: 20210329
  Receipt Date: 20210329
  Transmission Date: 20210420
  Serious: Yes (Other)
  Sender: FDA-Public Use
  Company Number: US-AMERICAN REGENT INC-2021000776

PATIENT

DRUGS (2)
  1. ACETYLCYSTEINE SOLUTION, USP (7504?25) [Suspect]
     Active Substance: ACETYLCYSTEINE
     Indication: RHABDOMYOLYSIS
  2. ACETYLCYSTEINE SOLUTION, USP (7504?25) [Suspect]
     Active Substance: ACETYLCYSTEINE
     Indication: TRANSAMINASES INCREASED
     Dosage: UNK
     Route: 065

REACTIONS (2)
  - Anaphylactoid reaction [Recovered/Resolved]
  - Product use in unapproved indication [Unknown]
